FAERS Safety Report 6400440-5 (Version None)
Quarter: 2009Q4

REPORT INFORMATION
  Report Type: 
  Country: None (occurrence: None)
  Receive Date: 20091007
  Receipt Date: 20091007
  Transmission Date: 20100525
  Serious: No
  Sender: FDA-Public Use
  Company Number: None

PATIENT
  Sex: Male
  Weight: 99.7913 kg

DRUGS (3)
  1. LEVETIRACETAM [Suspect]
     Indication: NUCLEAR MAGNETIC RESONANCE IMAGING
     Dosage: 500 MG BID PO
     Route: 048
     Dates: start: 20090919, end: 20090921
  2. LEVETIRACETAM [Suspect]
  3. KEPPRA [Concomitant]

REACTIONS (1)
  - URTICARIA [None]
